FAERS Safety Report 6088560-9 (Version None)
Quarter: 2009Q1

REPORT INFORMATION
  Report Type: 
  Country: None (occurrence: None)
  Receive Date: 20090224
  Receipt Date: 20090210
  Transmission Date: 20090719
  Serious: Yes (Hospitalization, Other)
  Sender: FDA-Public Use
  Company Number: US-ELI_LILLY_AND_COMPANY-US200902002158

PATIENT
  Sex: Female

DRUGS (5)
  1. FORTEO [Suspect]
     Indication: OSTEOPOROSIS
     Dosage: UNK, UNK
     Dates: start: 20080101, end: 20080101
  2. FORTEO [Suspect]
  3. LIPITOR [Concomitant]
  4. NEXIUM [Concomitant]
  5. ELAVIL [Concomitant]

REACTIONS (3)
  - MENINGITIS [None]
  - PNEUMONIA [None]
  - WEST NILE VIRAL INFECTION [None]
